FAERS Safety Report 12897611 (Version 1)
Quarter: 2016Q4

REPORT INFORMATION
  Report Type: Spontaneous
  Country: SG (occurrence: SG)
  Receive Date: 20161031
  Receipt Date: 20161031
  Transmission Date: 20170207
  Serious: Yes (Other)
  Sender: FDA-Public Use
  Company Number: SG-TEVA-707437ISR

PATIENT

DRUGS (5)
  1. FOLINIC ACID [Suspect]
     Active Substance: LEUCOVORIN
     Indication: COLORECTAL CANCER METASTATIC
     Dosage: 400 MG/M2 OVER A PERIOD OF 2 HOURS
     Route: 042
  2. FLUOROURACIL. [Suspect]
     Active Substance: FLUOROURACIL
     Indication: COLORECTAL CANCER METASTATIC
     Dosage: 2400 MG/M2 CONTINUOUS INFUSION OVER A PERIOD OF 46 HOURS
     Route: 041
  3. AFLIBERCEPT [Suspect]
     Active Substance: AFLIBERCEPT
     Indication: COLORECTAL CANCER METASTATIC
     Dosage: 4 MG/KG, OVER A PERIOD OF 1 HOUR EVERY 2 WEEKS STARTING ON DAY 1
     Route: 042
  4. IRINOTECAN [Suspect]
     Active Substance: IRINOTECAN
     Indication: COLORECTAL CANCER METASTATIC
     Dosage: 180 MG/M2 OVER A PERIOD OF 90 MINUTES
     Route: 042
  5. FLUOROURACIL. [Suspect]
     Active Substance: FLUOROURACIL
     Indication: COLORECTAL CANCER METASTATIC
     Dosage: 400 MG/M2 BOLUS FOLLOWED BY 2400 MG/M2 CONTINUOUS INFUSION OVER A PERIOD OF 46 HOURS
     Route: 040

REACTIONS (2)
  - Anal abscess [Unknown]
  - Neutropenia [Unknown]
